FAERS Safety Report 21443611 (Version 4)
Quarter: 2022Q4

REPORT INFORMATION
  Report Type: Spontaneous
  Country: US (occurrence: US)
  Receive Date: 20221012
  Receipt Date: 20221120
  Transmission Date: 20230113
  Serious: No
  Sender: FDA-Public Use
  Company Number: US-JNJFOC-20221000395

PATIENT
  Age: 53 Year
  Sex: Female
  Weight: 81.720 kg

DRUGS (1)
  1. SIMPONI [Suspect]
     Active Substance: GOLIMUMAB
     Indication: Product used for unknown indication
     Dosage: STRENGTH: 100.00 MG/ML
     Route: 058

REACTIONS (5)
  - Syringe issue [Unknown]
  - Needle issue [Unknown]
  - Pain [Unknown]
  - Accidental exposure to product [Unknown]
  - Product dose omission issue [Unknown]
